FAERS Safety Report 6620135-2 (Version None)
Quarter: 2010Q1

REPORT INFORMATION
  Report Type: 
  Country: None (occurrence: None)
  Receive Date: 20100309
  Receipt Date: 20060227
  Transmission Date: 20100710
  Serious: Yes (Hospitalization, Other)
  Sender: FDA-Public Use
  Company Number: HQWYE998024FEB06

PATIENT
  Sex: Male
  Weight: 87.17 kg

DRUGS (2)
  1. NEUMEGA [Suspect]
     Indication: PLATELET COUNT DECREASED
     Dosage: 50 UG/KG ONE TIME PER DAY
     Route: 058
     Dates: start: 20060213, end: 20060216
  2. PREDNISONE [Concomitant]
     Indication: THROMBOCYTOPENIA
     Dosage: ONCE A DAY (DOSE NOT PROVIDED)
     Route: 048

REACTIONS (1)
  - ATRIAL FIBRILLATION [None]
